FAERS Safety Report 17314536 (Version 1)
Quarter: 2020Q1

REPORT INFORMATION
  Report Type: Spontaneous
  Country: US (occurrence: US)
  Receive Date: 20200123
  Receipt Date: 20200123
  Transmission Date: 20200409
  Serious: No
  Sender: FDA-Public Use
  Company Number: None

PATIENT
  Age: 17 Year
  Sex: Female
  Weight: 54 kg

DRUGS (1)
  1. AUVI-Q [Suspect]
     Active Substance: EPINEPHRINE
     Indication: FOOD ALLERGY
     Dosage: ?          QUANTITY:2 INJECTION(S);?
     Route: 030

REACTIONS (2)
  - Suspected product quality issue [None]
  - Product storage error [None]

NARRATIVE: CASE EVENT DATE: 20200123
